FAERS Safety Report 5362521-7 (Version None)
Quarter: 2007Q2

REPORT INFORMATION
  Report Type: 
  Country: None (occurrence: None)
  Receive Date: 20070619
  Receipt Date: 20070611
  Transmission Date: 20071010
  Serious: Yes (Hospitalization)
  Sender: FDA-Public Use
  Company Number: FR-ASTRAZENECA-2007CG00886

PATIENT
  Age: 58 Year
  Sex: Female

DRUGS (2)
  1. CRESTOR [Suspect]
     Route: 048
     Dates: start: 20061201, end: 20070430
  2. LEVOTHYROXINE SODIUM [Suspect]
     Route: 048
     Dates: end: 20070430

REACTIONS (3)
  - ARTHRALGIA [None]
  - ASTHENIA [None]
  - CYTOLYTIC HEPATITIS [None]
